FAERS Safety Report 12364724 (Version 2)
Quarter: 2016Q2

REPORT INFORMATION
  Report Type: Spontaneous
  Country: US (occurrence: US)
  Receive Date: 20160512
  Receipt Date: 20160516
  Transmission Date: 20160815
  Serious: No
  Sender: FDA-Public Use
  Company Number: US-GILEAD-2016-0213375

PATIENT
  Age: 63 Year
  Sex: Male

DRUGS (1)
  1. HARVONI [Suspect]
     Active Substance: LEDIPASVIR\SOFOSBUVIR
     Indication: HEPATITIS C
     Dosage: 1 DF, QD
     Route: 048
     Dates: start: 20160412

REACTIONS (5)
  - Headache [Unknown]
  - Photosensitivity reaction [Unknown]
  - Halo vision [Unknown]
  - Corrective lens user [Unknown]
  - Visual impairment [Unknown]

NARRATIVE: CASE EVENT DATE: 20160412
